FAERS Safety Report 14547079 (Version 14)
Quarter: 2018Q3

REPORT INFORMATION
  Report Type: Spontaneous
  Country: PR (occurrence: PR)
  Receive Date: 20180219
  Receipt Date: 20180920
  Transmission Date: 20181010
  Serious: No
  Sender: FDA-Public Use
  Company Number: PR-PFIZER INC-2018069131

PATIENT
  Age: 72 Year
  Sex: Male
  Weight: 96 kg

DRUGS (9)
  1. SUTENT [Suspect]
     Active Substance: SUNITINIB MALATE
     Dosage: 37.5 MG, CYCLIC (3 WEEKS ON AND 1 WEEK OFF)
     Dates: start: 20180215, end: 201803
  2. SUTENT [Suspect]
     Active Substance: SUNITINIB MALATE
     Dosage: 37.5 MG, CYCLIC (2 WEEKS ON AND 2 WEEKS OFF)
     Dates: start: 2018, end: 2018
  3. LEVOTHYROXINE. [Concomitant]
     Active Substance: LEVOTHYROXINE
     Dosage: UNK
  4. OMEPRAZOLE. [Concomitant]
     Active Substance: OMEPRAZOLE
     Dosage: UNK
  5. SUTENT [Suspect]
     Active Substance: SUNITINIB MALATE
     Dosage: 37.5 MG, CYCLIC (2 WEEKS ON AND 1 WEEK OFF)
     Dates: start: 2018, end: 2018
  6. SUTENT [Suspect]
     Active Substance: SUNITINIB MALATE
     Dosage: 37.5 MG, CYCLIC (2 WEEKS ON AND 1 WEEK OFF)
     Dates: start: 2018
  7. SUTENT [Suspect]
     Active Substance: SUNITINIB MALATE
     Indication: RENAL CANCER STAGE IV
     Dosage: 50 MG, CYCLIC (3 WEEKS ON AND 1 WEEK OFF)
     Dates: start: 20180118, end: 201802
  8. SUTENT [Suspect]
     Active Substance: SUNITINIB MALATE
     Dosage: 37.5 MG, CYCLIC (2 WEEKS ON AND 1 WEEK OFF)
     Dates: start: 20180531, end: 2018
  9. SUTENT [Suspect]
     Active Substance: SUNITINIB MALATE
     Dosage: 50 MG, UNK
     Dates: start: 2018, end: 2018

REACTIONS (19)
  - Oral pain [Unknown]
  - Diarrhoea [Recovering/Resolving]
  - Thyroid function test abnormal [Unknown]
  - Abdominal pain upper [Unknown]
  - Tongue discomfort [Unknown]
  - Dysgeusia [Not Recovered/Not Resolved]
  - Weight decreased [Unknown]
  - Dyspnoea [Unknown]
  - Feeling abnormal [Unknown]
  - Influenza [Unknown]
  - Abdominal pain [Unknown]
  - Gingival pain [Unknown]
  - Asthenia [Unknown]
  - Gastritis [Recovering/Resolving]
  - Glossodynia [Unknown]
  - Dyspnoea exertional [Unknown]
  - Back pain [Unknown]
  - Dyspepsia [Unknown]
  - Oral discomfort [Unknown]

NARRATIVE: CASE EVENT DATE: 2018
